FAERS Safety Report 7363322-0 (Version None)
Quarter: 2011Q1

REPORT INFORMATION
  Report Type: 
  Country: None (occurrence: None)
  Receive Date: 20110321
  Receipt Date: 20110308
  Transmission Date: 20110831
  Serious: Yes (Hospitalization)
  Sender: FDA-Public Use
  Company Number: US-JNJFOC-20080905258

PATIENT
  Sex: Male
  Weight: 52 kg

DRUGS (4)
  1. REMICADE [Suspect]
     Indication: COLITIS
     Route: 042
  2. MERCAPTOPURINE [Concomitant]
  3. MESALAMINE [Concomitant]
     Route: 048
  4. REMICADE [Suspect]
     Dosage: TOTAL 8 DOSES RECEIVED
     Route: 042

REACTIONS (1)
  - COLITIS [None]
